FAERS Safety Report 25961224 (Version 2)
Quarter: 2025Q4

REPORT INFORMATION
  Report Type: Spontaneous
  Country: US (occurrence: US)
  Receive Date: 20251027
  Receipt Date: 20251113
  Transmission Date: 20260117
  Serious: Yes (Other)
  Sender: AUROBINDO
  Company Number: US-AUROBINDO-AUR-APL-2025-052896

PATIENT
  Age: 62 Year
  Sex: Female

DRUGS (8)
  1. IMATINIB [Suspect]
     Active Substance: IMATINIB
     Indication: Epithelioid sarcoma
     Dosage: 400 MILLIGRAM, DAILY
     Route: 065
  2. IMATINIB [Suspect]
     Active Substance: IMATINIB
     Indication: Metastasis
  3. SUNITINIB MALATE [Suspect]
     Active Substance: SUNITINIB MALATE
     Indication: Epithelioid sarcoma
     Dosage: 37.5 MILLIGRAM, DAILY
     Route: 065
  4. DOCETAXEL [Suspect]
     Active Substance: DOCETAXEL
     Indication: Epithelioid sarcoma
     Dosage: 50 MG/M2, 2 WEEKS
     Route: 065
     Dates: start: 20230829, end: 20240227
  5. DOCETAXEL [Suspect]
     Active Substance: DOCETAXEL
     Indication: Neoplasm malignant
  6. GEMCITABINE [Suspect]
     Active Substance: GEMCITABINE
     Indication: Epithelioid sarcoma
     Dosage: 1500 MG/M2, EVERY 2 WEEKS
     Route: 065
     Dates: start: 20230829, end: 20240227
  7. GEMCITABINE [Suspect]
     Active Substance: GEMCITABINE
     Indication: Neoplasm malignant
  8. PAZOPANIB [Concomitant]
     Active Substance: PAZOPANIB
     Indication: Product used for unknown indication
     Dosage: 400 MILLIGRAM, DAILY
     Route: 048

REACTIONS (3)
  - Hyponatraemia [Unknown]
  - Drug ineffective [Unknown]
  - Pleural effusion [Unknown]

NARRATIVE: CASE EVENT DATE: 20240101
